FAERS Safety Report 4354608-2 (Version None)
Quarter: 2004Q2

REPORT INFORMATION
  Report Type: 
  Country: None (occurrence: None)
  Receive Date: 20040506
  Receipt Date: 20040506
  Transmission Date: 20050107
  Serious: Yes (Other)
  Sender: FDA-Public Use
  Company Number: None

PATIENT
  Age: 74 Year
  Sex: Female

DRUGS (1)
  1. PLAVIX [Suspect]
     Indication: INTERMITTENT CLAUDICATION
     Dosage: 75 MG QD ORAL
     Route: 048
     Dates: start: 20030524, end: 20040429

REACTIONS (1)
  - TINNITUS [None]
